FAERS Safety Report 6992289-X (Version None)
Quarter: 2010Q3

REPORT INFORMATION
  Report Type: 
  Country: None (occurrence: None)
  Receive Date: 20100917
  Receipt Date: 20100907
  Transmission Date: 20110219
  Serious: Yes (Hospitalization, Other)
  Sender: FDA-Public Use
  Company Number: GB-PFIZER INC-2010084959

PATIENT
  Age: 36 Year
  Sex: Female

DRUGS (3)
  1. SERTRALINE HYDROCHLORIDE [Suspect]
     Indication: DEPRESSION
     Dosage: 50 MG, 1X/DAY
  2. DOSULEPIN [Suspect]
     Indication: INSOMNIA
     Dosage: 75 MG ONCE DAILY
  3. FLUOXETINE [Suspect]
     Indication: DEPRESSION
     Dosage: 20 MG, 1X/DAY

REACTIONS (4)
  - DEPRESSION [None]
  - DRUG INTERACTION [None]
  - HYPOMANIA [None]
  - PSYCHOTIC DISORDER [None]
